FAERS Safety Report 12700506 (Version 6)
Quarter: 2020Q4

REPORT INFORMATION
  Report Type: Spontaneous
  Country: US (occurrence: US)
  Receive Date: 20160830
  Receipt Date: 20201216
  Transmission Date: 20210113
  Serious: Yes (Hospitalization, Other)
  Sender: FDA-Public Use
  Company Number: US-SA-2016SA089920

PATIENT

DRUGS (8)
  1. DIPHENHYDRAMINE. [Concomitant]
     Active Substance: DIPHENHYDRAMINE
  2. FABRAZYME [Suspect]
     Active Substance: AGALSIDASE BETA
     Indication: FABRY^S DISEASE
     Dosage: 70 MG/KG,QOW
     Route: 041
     Dates: start: 20100524, end: 20160420
  3. FABRAZYME [Suspect]
     Active Substance: AGALSIDASE BETA
     Indication: LIPIDOSIS
     Dosage: 70 MG/KG,QOW
     Route: 041
     Dates: start: 2016
  4. NORMAL SALINE [Concomitant]
     Active Substance: SODIUM CHLORIDE
  5. STERILE WATER [Concomitant]
     Active Substance: WATER
     Dosage: UNK
     Route: 065
  6. SOLU-MEDROL [Concomitant]
     Active Substance: METHYLPREDNISOLONE SODIUM SUCCINATE
  7. TYLENOL [Concomitant]
     Active Substance: ACETAMINOPHEN
  8. EPINEPHRINE. [Concomitant]
     Active Substance: EPINEPHRINE

REACTIONS (9)
  - Inflammation [Unknown]
  - Illness [Unknown]
  - Hypoacusis [Not Recovered/Not Resolved]
  - Tinnitus [Unknown]
  - Blood pressure increased [Unknown]
  - Poor quality sleep [Unknown]
  - Confusional state [Unknown]
  - End stage renal disease [Unknown]
  - Ear pain [Unknown]

NARRATIVE: CASE EVENT DATE: 201605
